FAERS Safety Report 24583343 (Version 1)
Quarter: 2024Q4

REPORT INFORMATION
  Report Type: Report from Study
  Country: US (occurrence: US)
  Receive Date: 20241106
  Receipt Date: 20241106
  Transmission Date: 20250115
  Serious: Yes (Hospitalization)
  Sender: CSL BEHRING
  Company Number: US-BEH-2021127849

PATIENT
  Age: 46 Year
  Sex: Female
  Weight: 81.633 kg

DRUGS (5)
  1. HIZENTRA [Suspect]
     Active Substance: HUMAN IMMUNOGLOBULIN G
     Indication: Product used for unknown indication
     Route: 065
  2. PRILOSEC [Concomitant]
     Active Substance: OMEPRAZOLE MAGNESIUM
     Dosage: 40 MILLIGRAM 1X
  3. ASPIRIN [Concomitant]
     Active Substance: ASPIRIN
     Dosage: 80 MILLIGRAM 1X
  4. ACTOS [Concomitant]
     Active Substance: PIOGLITAZONE HYDROCHLORIDE
     Dosage: 80 MILLIGRAM 1X
  5. PREDNISONE [Concomitant]
     Active Substance: PREDNISONE
     Dosage: 12 MILLIGRAM 1X

REACTIONS (3)
  - Hospitalisation [Unknown]
  - Inability to afford medication [Not Recovered/Not Resolved]
  - Product dose omission in error [Unknown]
